FAERS Safety Report 5348466-7 (Version None)
Quarter: 2007Q2

REPORT INFORMATION
  Report Type: 
  Country: None (occurrence: None)
  Receive Date: 20070606
  Receipt Date: 20070526
  Transmission Date: 20071010
  Serious: Yes (Other)
  Sender: FDA-Public Use
  Company Number: US-PFIZER INC-2007037138

PATIENT
  Sex: Female

DRUGS (7)
  1. REVATIO [Suspect]
     Indication: PULMONARY HYPERTENSION
     Route: 048
  2. CHANTIX [Suspect]
     Indication: SMOKING CESSATION THERAPY
  3. MIACALCIN [Suspect]
  4. CALCITONIN-SALMON [Concomitant]
     Indication: OSTEOPOROSIS
     Route: 045
     Dates: start: 20060401, end: 20070401
  5. FUROSEMIDE [Concomitant]
  6. LORAZEPAM [Concomitant]
  7. PREMARIN [Concomitant]

REACTIONS (3)
  - LOWER LIMB DEFORMITY [None]
  - MUSCLE ATROPHY [None]
  - RESTLESS LEGS SYNDROME [None]
